FAERS Safety Report 22166355 (Version 1)
Quarter: 2023Q2

REPORT INFORMATION
  Report Type: Spontaneous
  Country: CN (occurrence: None)
  Receive Date: 20230403
  Receipt Date: 20230403
  Transmission Date: 20230722
  Serious: Yes (Other)
  Sender: FDA-Public Use
  Company Number: CN-ROCHE-3319279

PATIENT
  Sex: Female

DRUGS (2)
  1. MABTHERA [Suspect]
     Active Substance: RITUXIMAB
     Indication: Neuromyelitis optica spectrum disorder
     Dosage: FOR 2 CYCLES
     Route: 041
  2. HUMAN IMMUNOGLOBULIN G [Concomitant]
     Active Substance: HUMAN IMMUNOGLOBULIN G
     Indication: Neuromyelitis optica spectrum disorder
     Route: 042

REACTIONS (6)
  - Optic neuritis [Unknown]
  - Sensory disturbance [Unknown]
  - Dysaesthesia [Unknown]
  - Bladder dysfunction [Unknown]
  - Spinal cord neoplasm [Unknown]
  - Off label use [Unknown]
